FAERS Safety Report 4728081-6 (Version None)
Quarter: 2005Q3

REPORT INFORMATION
  Report Type: 
  Country: None (occurrence: None)
  Receive Date: 20050729
  Receipt Date: 20041224
  Transmission Date: 20060218
  Serious: Yes (Other)
  Sender: FDA-Public Use
  Company Number: PHRM2004FR03766

PATIENT
  Age: 69 Year
  Sex: Male
  Weight: 78 kg

DRUGS (4)
  1. LAMISIL [Suspect]
     Indication: NAIL TINEA
     Dosage: 250 MG, QD
     Route: 048
     Dates: start: 20030429, end: 20040723
  2. GLUCOR [Concomitant]
     Dosage: UNK, UNK
     Route: 048
     Dates: start: 20040428
  3. DIAMICRON [Concomitant]
     Route: 048
  4. PRACTAZIN [Concomitant]
     Route: 048

REACTIONS (3)
  - DYSPNOEA EXERTIONAL [None]
  - FATIGUE [None]
  - INTERSTITIAL LUNG DISEASE [None]
